FAERS Safety Report 19179533 (Version 1)
Quarter: 2021Q2

REPORT INFORMATION
  Report Type: Spontaneous
  Country: US (occurrence: US)
  Receive Date: 20210423
  Receipt Date: 20210423
  Transmission Date: 20210717
  Serious: Yes (Disabling)
  Sender: FDA-Public Use
  Company Number: None

PATIENT
  Age: 44 Year
  Sex: Female
  Weight: 81 kg

DRUGS (7)
  1. ASPIRIN. [Concomitant]
     Active Substance: ASPIRIN
  2. VIT D [Concomitant]
     Active Substance: VITAMIN D NOS
  3. VITAMIN B12 [Concomitant]
     Active Substance: CYANOCOBALAMIN
  4. BACLOFEN. [Concomitant]
     Active Substance: BACLOFEN
  5. OCREVUS [Suspect]
     Active Substance: OCRELIZUMAB
     Indication: MULTIPLE SCLEROSIS
     Dates: start: 20190505, end: 20190520
  6. LYRICA [Concomitant]
     Active Substance: PREGABALIN
  7. IRON [Concomitant]
     Active Substance: IRON

REACTIONS (3)
  - Gait disturbance [None]
  - Walking aid user [None]
  - Loss of employment [None]

NARRATIVE: CASE EVENT DATE: 20190620
